FAERS Safety Report 9616900 (Version 3)
Quarter: 2013Q4

REPORT INFORMATION
  Report Type: Spontaneous
  Country: BR (occurrence: BR)
  Receive Date: 20131011
  Receipt Date: 20131210
  Transmission Date: 20140711
  Serious: Yes (Other)
  Sender: FDA-Public Use
  Company Number: PHHY2013BR114355

PATIENT
  Age: 77 Year
  Sex: Female

DRUGS (4)
  1. DIOVAN HCT [Suspect]
     Indication: HYPERTENSION
  2. DIOVAN [Suspect]
     Indication: HYPERTENSION
     Dosage: 160MG DAILY
     Route: 048
  3. NATRILIX [Concomitant]
     Indication: DIURETIC THERAPY
     Dosage: 0.5 DF, (ON MONDAY, WEDNESDAY AND FRIDAY)
     Route: 048
  4. PRADAXA [Concomitant]
     Indication: ANTICOAGULANT THERAPY
     Dosage: 2 DF, (110 MG) DAILY
     Route: 048
     Dates: start: 201201

REACTIONS (3)
  - Urinary tract infection [Recovered/Resolved]
  - Bladder disorder [Recovered/Resolved]
  - Blood pressure increased [Unknown]
